FAERS Safety Report 4862461-3 (Version None)
Quarter: 2005Q4

REPORT INFORMATION
  Report Type: 
  Country: None (occurrence: None)
  Receive Date: 20051221
  Receipt Date: 20051212
  Transmission Date: 20060501
  Serious: Yes (Hospitalization)
  Sender: FDA-Public Use
  Company Number: PHBS2005BR18370

PATIENT
  Age: 4 Year
  Sex: Female
  Weight: 28 kg

DRUGS (1)
  1. LEPONEX [Suspect]
     Indication: ACCIDENTAL EXPOSURE
     Dosage: 50 MG, ONCE/SINGLE
     Route: 048
     Dates: start: 20051212, end: 20051212

REACTIONS (3)
  - ACCIDENTAL EXPOSURE [None]
  - GASTRIC LAVAGE [None]
  - SOMNOLENCE [None]
